FAERS Safety Report 16527209 (Version 1)
Quarter: 2019Q3

REPORT INFORMATION
  Report Type: Spontaneous
  Country: US (occurrence: US)
  Receive Date: 20190703
  Receipt Date: 20190703
  Transmission Date: 20191004
  Serious: No
  Sender: FDA-Public Use
  Company Number: US-AVEDRO-AVE-2019-0157-AE

PATIENT
  Age: 37 Year
  Sex: Male

DRUGS (2)
  1. AVEDRO CROSS-LINKING PRODUCT(S), UNSPECIFIED [Suspect]
     Active Substance: RIBOFLAVIN 5^-PHOSPHATE SODIUM
     Indication: KERATOCONUS
     Route: 047
     Dates: start: 201704, end: 201704
  2. AVEDRO CROSS-LINKING PRODUCT(S), UNSPECIFIED [Suspect]
     Active Substance: RIBOFLAVIN 5^-PHOSPHATE SODIUM
     Route: 047
     Dates: start: 201709, end: 201709

REACTIONS (2)
  - Eye pain [Unknown]
  - Eye pain [Unknown]

NARRATIVE: CASE EVENT DATE: 201704
